FAERS Safety Report 5468653-7 (Version None)
Quarter: 2007Q3

REPORT INFORMATION
  Report Type: 
  Country: None (occurrence: None)
  Receive Date: 20070921
  Receipt Date: 20070911
  Transmission Date: 20080115
  Serious: Yes (Hospitalization, Other)
  Sender: FDA-Public Use
  Company Number: 2007P1000268

PATIENT
  Age: 6 Year
  Sex: Female

DRUGS (8)
  1. BUSULFAN                          (BUSULFAN) [Suspect]
     Indication: STEM CELL TRANSPLANT
     Dosage: 10.2 ML; QD; IV; 13.6 ML; QD; IV; 3.4 ML; QD; IV
     Route: 042
     Dates: start: 20061206, end: 20061206
  2. BUSULFAN                          (BUSULFAN) [Suspect]
     Indication: STEM CELL TRANSPLANT
     Dosage: 10.2 ML; QD; IV; 13.6 ML; QD; IV; 3.4 ML; QD; IV
     Route: 042
     Dates: start: 20061207, end: 20061209
  3. BUSULFAN                          (BUSULFAN) [Suspect]
     Indication: STEM CELL TRANSPLANT
     Dosage: 10.2 ML; QD; IV; 13.6 ML; QD; IV; 3.4 ML; QD; IV
     Route: 042
     Dates: start: 20061210, end: 20061210
  4. MELPHALAN                   (MELPHALAN) [Suspect]
     Indication: STEM CELL TRANSPLANT
     Dosage: 70 MG; QD; IV
     Route: 042
     Dates: start: 20061210, end: 20061211
  5. TACROLIMUS [Suspect]
     Indication: PROPHYLAXIS AGAINST GRAFT VERSUS HOST DISEASE
  6. PHENYTOIN [Concomitant]
  7. LENOGRASTIM [Concomitant]
  8. METHOTREXATE [Concomitant]

REACTIONS (10)
  - ACUTE GRAFT VERSUS HOST DISEASE [None]
  - ANOREXIA [None]
  - CYTOMEGALOVIRUS ANTIGEN POSITIVE [None]
  - DIABETES MELLITUS [None]
  - DIARRHOEA [None]
  - FEBRILE NEUTROPENIA [None]
  - MALAISE [None]
  - OEDEMA MOUTH [None]
  - PHARYNGOLARYNGEAL PAIN [None]
  - STOMATITIS [None]
